FAERS Safety Report 12449856 (Version 2)
Quarter: 2017Q2

REPORT INFORMATION
  Report Type: Spontaneous
  Country: US (occurrence: US)
  Receive Date: 20160609
  Receipt Date: 20170407
  Transmission Date: 20170830
  Serious: No
  Sender: FDA-Public Use
  Company Number: US-JNJFOC-20160601415

PATIENT
  Sex: Male

DRUGS (4)
  1. RISPERIDONE. [Suspect]
     Active Substance: RISPERIDONE
     Indication: PRODUCT USED FOR UNKNOWN INDICATION
     Route: 048
  2. INVEGA [Suspect]
     Active Substance: PALIPERIDONE
     Indication: PRODUCT USED FOR UNKNOWN INDICATION
     Route: 048
  3. RISPERDAL [Suspect]
     Active Substance: RISPERIDONE
     Indication: NEUROPATHY PERIPHERAL
     Route: 048
     Dates: start: 20110801, end: 20140222
  4. RISPERDAL [Suspect]
     Active Substance: RISPERIDONE
     Indication: NEUROPATHY PERIPHERAL
     Route: 048
     Dates: start: 20140320, end: 20150111

REACTIONS (3)
  - Abnormal weight gain [Unknown]
  - Gynaecomastia [Unknown]
  - Blood prolactin abnormal [Unknown]

NARRATIVE: CASE EVENT DATE: 2011
